FAERS Safety Report 8872305 (Version 1)
Quarter: 2012Q4

REPORT INFORMATION
  Report Type: 
  Country: US (occurrence: US)
  Receive Date: 20121030
  Receipt Date: 20121030
  Transmission Date: 20130627
  Serious: No
  Sender: FDA-Public Use
  Company Number: US-B.I. PHARMACEUTICALS,INC./RIDGEFIELD-2012-BP-26467BP

PATIENT
  Age: 70 None
  Sex: Female
  Weight: 82 kg

DRUGS (20)
  1. PRADAXA [Suspect]
     Indication: ATRIAL FIBRILLATION
     Dosage: 300 mg
     Route: 048
     Dates: start: 20120803
  2. METFORMIN [Concomitant]
     Indication: TYPE 2 DIABETES MELLITUS
     Route: 048
  3. GLIPIZIDE ER [Concomitant]
     Indication: TYPE 2 DIABETES MELLITUS
     Dosage: 10 mg
     Route: 048
     Dates: start: 20121019
  4. MELOXICAM [Concomitant]
     Indication: OSTEOPOROSIS
     Route: 048
  5. MELOXICAM [Concomitant]
     Indication: ARTHRITIS
  6. VITAMIN B6 [Concomitant]
     Indication: SUPPLEMENTATION THERAPY
     Route: 048
  7. ESTRACE CREAM [Concomitant]
     Indication: VULVOVAGINAL DRYNESS
     Route: 061
  8. CAMPRAL [Concomitant]
     Indication: DENTAL CARE
  9. HYOSCYAMINE [Concomitant]
     Indication: ABDOMINAL PAIN
     Route: 048
  10. NASONEX [Concomitant]
     Indication: NASAL CONGESTION
  11. LEVOTHYROXINE [Concomitant]
     Indication: HYPOTHYROIDISM
     Dosage: 0.15 mg
     Route: 048
     Dates: start: 2001
  12. NYSTATIN POWDER [Concomitant]
     Indication: RASH
  13. OMEGA 3 [Concomitant]
     Indication: SUPPLEMENTATION THERAPY
     Dosage: 2000 mg
     Route: 048
  14. LISINOPRIL [Concomitant]
     Indication: HYPERTENSION
     Dosage: 5 mg
     Route: 048
  15. METOPROLOL [Concomitant]
     Indication: CARDIAC DISORDER
     Dosage: 100 mg
     Route: 048
     Dates: start: 20120803
  16. GLUCOSAMINE CHONDROITIN [Concomitant]
     Indication: VITAMIN SUPPLEMENTATION
  17. CALCIUM [Concomitant]
     Indication: SUPPLEMENTATION THERAPY
     Route: 048
  18. VITAMIN D [Concomitant]
     Indication: SUPPLEMENTATION THERAPY
     Route: 048
  19. PRO-AIR HFA [Concomitant]
     Indication: DYSPNOEA
  20. OXYBUTYNIN [Concomitant]
     Indication: HYPERTONIC BLADDER
     Dosage: 10 mg
     Route: 048

REACTIONS (9)
  - Nasopharyngitis [Not Recovered/Not Resolved]
  - Cough [Not Recovered/Not Resolved]
  - Increased upper airway secretion [Not Recovered/Not Resolved]
  - Abdominal pain [Not Recovered/Not Resolved]
  - Lymphadenopathy [Not Recovered/Not Resolved]
  - Blood glucose decreased [Recovered/Resolved]
  - Dyspnoea exertional [Not Recovered/Not Resolved]
  - Hypertension [Recovered/Resolved]
  - Weight increased [Not Recovered/Not Resolved]
